FAERS Safety Report 15668825 (Version 1)
Quarter: 2018Q4

REPORT INFORMATION
  Report Type: Spontaneous
  Country: US (occurrence: US)
  Receive Date: 20181129
  Receipt Date: 20181129
  Transmission Date: 20190205
  Serious: No
  Sender: FDA-Public Use
  Company Number: US-TORRENT-00006981

PATIENT
  Sex: Female
  Weight: 88 kg

DRUGS (2)
  1. HYDROCHLOROTHIAZIDE. [Concomitant]
     Active Substance: HYDROCHLOROTHIAZIDE
     Indication: HYPERTENSION
     Dosage: UNKNOWN
  2. LOSARTAN POTASSIUM TABLETS [Suspect]
     Active Substance: LOSARTAN POTASSIUM
     Indication: HYPERTENSION
     Dosage: A FULL AND A HALF 50 MG TABLET, ONCE A DAY IN MORNING
     Dates: start: 201704

REACTIONS (2)
  - Drug intolerance [Unknown]
  - Peripheral swelling [Recovered/Resolved]
